FAERS Safety Report 7722270-4 (Version None)
Quarter: 2011Q3

REPORT INFORMATION
  Report Type: 
  Country: None (occurrence: None)
  Receive Date: 20110831
  Receipt Date: 20110826
  Transmission Date: 20111222
  Serious: Yes (Life-Threatening)
  Sender: FDA-Public Use
  Company Number: US-ASTRAZENECA-2011SE51692

PATIENT
  Age: 60 Year
  Sex: Male

DRUGS (1)
  1. NEXIUM [Suspect]
     Route: 048

REACTIONS (3)
  - RESUSCITATION [None]
  - MYOCARDIAL INFARCTION [None]
  - VASCULAR GRAFT [None]
